FAERS Safety Report 5037944-6 (Version None)
Quarter: 2006Q2

REPORT INFORMATION
  Report Type: 
  Country: None (occurrence: None)
  Receive Date: 20060601
  Receipt Date: 20060202
  Transmission Date: 20061013
  Serious: No
  Sender: FDA-Public Use
  Company Number: 2006PV008046

PATIENT
  Age: 56 Year
  Sex: Female
  Weight: 113.3993 kg

DRUGS (6)
  1. BYETTA [Suspect]
     Indication: DIABETES MELLITUS NON-INSULIN-DEPENDENT
     Dosage: SEE IMAGE
     Route: 058
     Dates: start: 20051201, end: 20060122
  2. BYETTA [Suspect]
     Indication: DIABETES MELLITUS NON-INSULIN-DEPENDENT
     Dosage: SEE IMAGE
     Route: 058
     Dates: start: 20060127, end: 20060130
  3. BYETTA [Suspect]
     Indication: DIABETES MELLITUS NON-INSULIN-DEPENDENT
     Dosage: SEE IMAGE
     Route: 058
     Dates: start: 20051101
  4. METFORMIN [Concomitant]
  5. GLYBURIDE [Concomitant]
  6. ASPIRIN [Concomitant]

REACTIONS (4)
  - HEADACHE [None]
  - INJECTION SITE BRUISING [None]
  - INJECTION SITE URTICARIA [None]
  - NAUSEA [None]
